FAERS Safety Report 9380464 (Version 2)
Quarter: 2013Q3

REPORT INFORMATION
  Report Type: Spontaneous
  Country: CN (occurrence: CN)
  Receive Date: 20130702
  Receipt Date: 20130705
  Transmission Date: 20140515
  Serious: No
  Sender: FDA-Public Use
  Company Number: CN-009507513-1306CHN011807

PATIENT
  Age: 71 Year
  Sex: Male

DRUGS (2)
  1. PROSCAR [Suspect]
     Indication: BENIGN PROSTATIC HYPERPLASIA
     Dosage: 5 MG, QD ON AND OFF
     Route: 048
     Dates: start: 2011, end: 201303
  2. PROSCAR [Suspect]
     Dosage: 5 MG, QD
     Route: 048
     Dates: start: 201303

REACTIONS (2)
  - Abdominal discomfort [Unknown]
  - Inappropriate schedule of drug administration [Unknown]
